FAERS Safety Report 6431294-9 (Version None)
Quarter: 2009Q4

REPORT INFORMATION
  Report Type: 
  Country: None (occurrence: None)
  Receive Date: 20091106
  Receipt Date: 20091106
  Transmission Date: 20100525
  Serious: Yes (Life-Threatening, Hospitalization)
  Sender: FDA-Public Use
  Company Number: None

PATIENT
  Age: 44 Year
  Sex: Female
  Weight: 87 kg

DRUGS (1)
  1. CHANTIX [Suspect]
     Indication: SMOKING CESSATION THERAPY
     Dosage: 1 MG BID ORAL
     Route: 048
     Dates: start: 20090430

REACTIONS (4)
  - ALCOHOL POISONING [None]
  - FAMILY STRESS [None]
  - OVERDOSE [None]
  - SUICIDAL IDEATION [None]
